FAERS Safety Report 9213856 (Version 1)
Quarter: 2013Q2

REPORT INFORMATION
  Report Type: Spontaneous
  Country: PT (occurrence: PT)
  Receive Date: 20130405
  Receipt Date: 20130405
  Transmission Date: 20140414
  Serious: Yes (Other)
  Sender: FDA-Public Use
  Company Number: PT-MERCK-1304PRT000504

PATIENT
  Age: 82 Year
  Sex: Female

DRUGS (7)
  1. JANUMET [Suspect]
     Indication: DIABETES MELLITUS
     Dosage: UNK, BID
     Route: 048
     Dates: start: 201301
  2. CATALIP [Suspect]
     Dosage: UNK
     Dates: end: 2013
  3. CARVEDILOL [Concomitant]
     Dosage: 6.25 (2XDAY)
  4. VARFINE [Concomitant]
     Dosage: UNK
  5. RAMIPRIL [Concomitant]
     Dosage: 5 MG (1XDAY)
  6. LASIX (FUROSEMIDE) [Concomitant]
     Dosage: (1/2 X DAY)
  7. MAGNESIUM (UNSPECIFIED) [Concomitant]

REACTIONS (3)
  - Leukopenia [Recovering/Resolving]
  - Bone marrow disorder [Unknown]
  - Haemoglobin decreased [Not Recovered/Not Resolved]
